FAERS Safety Report 5471857-0 (Version None)
Quarter: 2007Q3

REPORT INFORMATION
  Report Type: 
  Country: None (occurrence: None)
  Receive Date: 20070928
  Receipt Date: 20070702
  Transmission Date: 20080115
  Serious: No
  Sender: FDA-Public Use
  Company Number: US-BRISTOL-MYERS SQUIBB COMPANY-13833009

PATIENT
  Age: 63 Year
  Sex: Male
  Weight: 146 kg

DRUGS (11)
  1. DEFINITY [Suspect]
     Indication: ECHOCARDIOGRAM
  2. OMEPRAZOLE [Concomitant]
  3. SENOKOT [Concomitant]
  4. SORBITOL [Concomitant]
  5. DULCOLAX [Concomitant]
  6. MAGNESIUM HYDROXIDE TAB [Concomitant]
  7. BACTRIM [Concomitant]
  8. WARFARIN [Concomitant]
  9. POTASSIUM CHLORIDE [Concomitant]
  10. INSULIN [Concomitant]
  11. BUMETANIDE [Concomitant]

REACTIONS (1)
  - BACK PAIN [None]
